FAERS Safety Report 11503071 (Version 1)
Quarter: 2015Q3

REPORT INFORMATION
  Report Type: Spontaneous
  Country: US (occurrence: US)
  Receive Date: 20150914
  Receipt Date: 20150914
  Transmission Date: 20151125
  Serious: No
  Sender: FDA-Public Use
  Company Number: US-ASTELLAS-2015US030543

PATIENT
  Sex: Male

DRUGS (1)
  1. XTANDI [Suspect]
     Active Substance: ENZALUTAMIDE
     Indication: PROSTATE CANCER
     Dosage: 120 MG, ONCE DAILY, (40 MG X 3 CAPSULES)
     Route: 048
     Dates: start: 20150521

REACTIONS (3)
  - Bone pain [Unknown]
  - Fatigue [Unknown]
  - Underdose [Unknown]
